FAERS Safety Report 8302827-2 (Version None)
Quarter: 2012Q2

REPORT INFORMATION
  Report Type: 
  Country: None (occurrence: None)
  Receive Date: 20120420
  Receipt Date: 20120405
  Transmission Date: 20120825
  Serious: Yes (Other)
  Sender: FDA-Public Use
  Company Number: CHPA2012US005580

PATIENT
  Sex: Female

DRUGS (2)
  1. GAS-X PREVENTION [Suspect]
     Indication: FLATULENCE
     Dosage: 1 DF, PRN
     Route: 048
  2. EXCEDRIN EXTRA STRENGTH TABLETS [Suspect]
     Indication: PAIN
     Dosage: 2 DF, UNK
     Route: 048

REACTIONS (4)
  - LYMPHOEDEMA [None]
  - OEDEMA PERIPHERAL [None]
  - MALAISE [None]
  - FOOT FRACTURE [None]
